FAERS Safety Report 10173146 (Version 1)
Quarter: 2014Q2

REPORT INFORMATION
  Report Type: Spontaneous
  Country: US (occurrence: US)
  Receive Date: 20140515
  Receipt Date: 20140515
  Transmission Date: 20141212
  Serious: No
  Sender: FDA-Public Use
  Company Number: US-PFIZER INC-2014129674

PATIENT
  Age: 70 Year
  Sex: Male
  Weight: 65.76 kg

DRUGS (14)
  1. VIAGRA [Suspect]
     Indication: ERECTILE DYSFUNCTION
     Dosage: 50 MG, UNK
  2. VIAGRA [Suspect]
     Dosage: 50 MG, DAILY
  3. VIAGRA [Suspect]
     Dosage: 100 MG (2X50MG), DAILY
     Dates: start: 201404
  4. VIAGRA [Suspect]
     Dosage: UNK
  5. GLIMEPIRIDE [Concomitant]
     Indication: DIABETES MELLITUS
     Dosage: 1 MG, DAILY
  6. LISINOPRIL [Concomitant]
     Indication: HYPERTENSION
     Dosage: 20 MG, 2X/DAY
  7. NIFEDIPINE [Concomitant]
     Indication: HYPERTENSION
     Dosage: 60 MG, DAILY
  8. ATORVASTATIN [Concomitant]
     Indication: BLOOD CHOLESTEROL INCREASED
     Dosage: 40 MG, DAILY
  9. CLOPIDOGREL [Concomitant]
     Indication: CARDIAC DISORDER
     Dosage: 75 MG, DAILY
  10. BABY ASPIRIN [Concomitant]
     Dosage: 81 MG, DAILY
  11. ATENOLOL [Concomitant]
     Dosage: 25 MG, DAILY
  12. VITRON-C [Concomitant]
     Dosage: UNK, 2X/DAY
     Route: 048
  13. VITAMIN D2 [Concomitant]
     Dosage: 125 MG, WEEKLY
     Route: 048
  14. MELOXICAM [Concomitant]
     Dosage: 15 MG, DAILY

REACTIONS (2)
  - Drug ineffective [Unknown]
  - Drug effect incomplete [Unknown]
